FAERS Safety Report 9070042 (Version 1)
Quarter: 2013Q1

REPORT INFORMATION
  Report Type: Report from Study
  Country: US (occurrence: US)
  Receive Date: 20130129
  Receipt Date: 20130129
  Transmission Date: 20140127
  Serious: No
  Sender: FDA-Public Use
  Company Number: US-ABBOTT-12P-163-0941093-00

PATIENT
  Age: 71 Year
  Sex: Male

DRUGS (10)
  1. HUMIRA 40 MG/ 0.8 ML PRE-FILLED SYRINGE [Suspect]
     Indication: COLITIS ULCERATIVE
     Dates: start: 20120529, end: 20120529
  2. HUMIRA 40 MG/ 0.8 ML PRE-FILLED SYRINGE [Suspect]
     Dates: start: 20120530, end: 20120530
  3. HUMIRA 40 MG/ 0.8 ML PRE-FILLED SYRINGE [Suspect]
  4. ASACOL [Concomitant]
     Indication: COLITIS ULCERATIVE
  5. CITALOPRAM [Concomitant]
     Indication: STRESS
     Dosage: 20MG DAILY
  6. SIMVASTATIN [Concomitant]
     Indication: BLOOD CHOLESTEROL INCREASED
     Dosage: 20MG DAILY
  7. TEMAZEPAM [Concomitant]
     Indication: RESTLESS LEGS SYNDROME
     Dosage: 15MG DAILY
  8. DOXAZOSIN [Concomitant]
     Indication: POLLAKIURIA
     Dosage: 4MG DAILY
  9. DOXAZOSIN [Concomitant]
     Indication: MICTURITION URGENCY
  10. PANTOPRAZOLE [Concomitant]
     Indication: GASTROOESOPHAGEAL REFLUX DISEASE
     Dosage: 40MG DAILY

REACTIONS (2)
  - Skin discolouration [Not Recovered/Not Resolved]
  - Contusion [Not Recovered/Not Resolved]
